FAERS Safety Report 5464022-4 (Version None)
Quarter: 2007Q3

REPORT INFORMATION
  Report Type: 
  Country: None (occurrence: None)
  Receive Date: 20070919
  Receipt Date: 20070904
  Transmission Date: 20080115
  Serious: Yes (Life-Threatening, Hospitalization, Other)
  Sender: FDA-Public Use
  Company Number: 2007US-09725

PATIENT
  Age: 72 Year
  Sex: Female

DRUGS (11)
  1. ISOPTIN SR [Suspect]
     Indication: DRUG USE FOR UNKNOWN INDICATION
     Dosage: 120 MG, QD, ORAL
     Route: 048
     Dates: start: 20070814, end: 20070817
  2. ITRACONAZOLE [Suspect]
     Indication: DRUG USE FOR UNKNOWN INDICATION
     Dosage: 140 MG, 2 IN 1 DOSE,
     Dates: start: 20070808
  3. ACICLOVIR SODIUM UNKNOWN [Concomitant]
  4. ACETYLSALICYLIC ACID UNKNOWN [Concomitant]
  5. LANSOPRAZOLE UNKNOWN [Concomitant]
  6. RITUXIMAB [Concomitant]
  7. LEVOTHYROXINE UNKNOWN [Concomitant]
  8. PRAMIPEXOLE UNKNOWN [Concomitant]
  9. ALLOPURINOL [Concomitant]
  10. CISPLATIN [Concomitant]
  11. CISPLATIN [Concomitant]

REACTIONS (2)
  - BRADYCARDIA [None]
  - REPERFUSION ARRHYTHMIA [None]
